FAERS Safety Report 19284780 (Version 1)
Quarter: 2021Q2

REPORT INFORMATION
  Report Type: Spontaneous
  Country: US (occurrence: US)
  Receive Date: 20210521
  Receipt Date: 20210521
  Transmission Date: 20210717
  Serious: Yes (Hospitalization)
  Sender: FDA-Public Use
  Company Number: None

PATIENT
  Age: 60 Year
  Sex: Female

DRUGS (20)
  1. NABUMETONE. [Concomitant]
     Active Substance: NABUMETONE
  2. HYDROCO/APAP [Concomitant]
     Active Substance: ACETAMINOPHEN\HYDROCODONE
  3. MONTELUKAST [Concomitant]
     Active Substance: MONTELUKAST SODIUM
  4. PREGABALIN. [Concomitant]
     Active Substance: PREGABALIN
  5. TERCONAZOLE. [Concomitant]
     Active Substance: TERCONAZOLE
  6. LISINOPRIL AND HYDROCHLOROTHIAZIDE [Concomitant]
     Active Substance: HYDROCHLOROTHIAZIDE\LISINOPRIL
  7. DIAZEPAM. [Concomitant]
     Active Substance: DIAZEPAM
  8. FOLIC ACID. [Concomitant]
     Active Substance: FOLIC ACID
  9. SYMBICORT [Concomitant]
     Active Substance: BUDESONIDE\FORMOTEROL FUMARATE DIHYDRATE
  10. METHOTREXATE. [Concomitant]
     Active Substance: METHOTREXATE
  11. CYCLOBENZAPR [Concomitant]
     Active Substance: CYCLOBENZAPRINE
  12. NYSTATIN. [Concomitant]
     Active Substance: NYSTATIN
  13. DEXAMETHASON [Concomitant]
     Active Substance: DEXAMETHASONE
  14. AZITHROMYCIN ANHYDROUS. [Concomitant]
     Active Substance: AZITHROMYCIN ANHYDROUS
  15. COVID?19 TES KIT [Concomitant]
  16. PREDNISONE. [Concomitant]
     Active Substance: PREDNISONE
  17. ORENCIA [Suspect]
     Active Substance: ABATACEPT
     Indication: RHEUMATOID ARTHRITIS
     Dosage: ?          OTHER FREQUENCY:ONCE A WEEK;?
     Route: 058
     Dates: start: 20210305
  18. AZELASTINE. [Concomitant]
     Active Substance: AZELASTINE HYDROCHLORIDE
  19. ALBUTEROL. [Concomitant]
     Active Substance: ALBUTEROL
  20. ROSUVASTATIN. [Concomitant]
     Active Substance: ROSUVASTATIN

REACTIONS (1)
  - Pneumonia [None]

NARRATIVE: CASE EVENT DATE: 20210330
